FAERS Safety Report 6612485-0 (Version None)
Quarter: 2010Q1

REPORT INFORMATION
  Report Type: 
  Country: None (occurrence: None)
  Receive Date: 20100223
  Receipt Date: 20100216
  Transmission Date: 20100710
  Serious: Yes (Other)
  Sender: FDA-Public Use
  Company Number: 2010SP009160

PATIENT
  Age: 63 Year
  Sex: Male
  Weight: 78.4 kg

DRUGS (6)
  1. TEMODAL [Suspect]
     Indication: DRUG USE FOR UNKNOWN INDICATION
     Dosage: 145 MG; QD; PO
     Route: 048
     Dates: start: 20090902, end: 20090930
  2. SIMVASTATIN [Suspect]
     Indication: DRUG USE FOR UNKNOWN INDICATION
     Dosage: 40 MG; ; PO
     Route: 048
     Dates: start: 20090701, end: 20091031
  3. DEXAMETHASONE [Concomitant]
  4. ESOMEPRAZOLE [Concomitant]
  5. LEVETIRACETAM [Concomitant]
  6. RAMIPRIL [Concomitant]

REACTIONS (1)
  - ALANINE AMINOTRANSFERASE INCREASED [None]
